FAERS Safety Report 6417478-4 (Version None)
Quarter: 2009Q4

REPORT INFORMATION
  Report Type: 
  Country: None (occurrence: None)
  Receive Date: 20091028
  Receipt Date: 20091023
  Transmission Date: 20100525
  Serious: Yes (Hospitalization)
  Sender: FDA-Public Use
  Company Number: US-BRISTOL-MYERS SQUIBB COMPANY-14814032

PATIENT
  Age: 52 Year
  Sex: Male
  Weight: 62 kg

DRUGS (6)
  1. IXABEPILONE [Suspect]
     Indication: NON-SMALL CELL LUNG CANCER
     Route: 042
     Dates: start: 20090810, end: 20090921
  2. CARBOPLATIN [Suspect]
     Indication: NON-SMALL CELL LUNG CANCER
     Dosage: 1 D.F= AUC 6
     Route: 042
     Dates: start: 20090810, end: 20090921
  3. BEVACIZUMAB [Suspect]
     Indication: NON-SMALL CELL LUNG CANCER
     Route: 042
     Dates: start: 20090810, end: 20090921
  4. CIPRO [Concomitant]
     Route: 048
     Dates: start: 20091005, end: 20091007
  5. COMPAZINE [Concomitant]
     Dosage: PRN
     Route: 048
     Dates: start: 20090921
  6. MORPHINE SULFATE [Concomitant]
     Dosage: 1 D.F= 15-30 MG(OF 15 MG TAB)Q4-6 HOURS PRN
     Route: 048
     Dates: start: 20090921

REACTIONS (1)
  - APPENDICITIS PERFORATED [None]
